FAERS Safety Report 24112680 (Version 1)
Quarter: 2024Q3

REPORT INFORMATION
  Report Type: Report from Study
  Country: EG (occurrence: EG)
  Receive Date: 20240719
  Receipt Date: 20240719
  Transmission Date: 20241017
  Serious: Yes (Death)
  Sender: ABBVIE
  Company Number: EG-ABBVIE-5843949

PATIENT
  Age: 41 Year
  Sex: Female

DRUGS (6)
  1. HUMIRA [Suspect]
     Active Substance: ADALIMUMAB
     Indication: Sacroiliitis
     Dosage: START DATE TEXT: A MONTH AFTER STARTING HUMIRA, START DATE IN 2024
     Route: 058
     Dates: end: 202403
  2. HUMIRA [Suspect]
     Active Substance: ADALIMUMAB
     Indication: Colitis ulcerative
     Dosage: STOP DATE TEXT: AFTER A MONTH, DISCONTINUED IN 2024
     Route: 058
     Dates: start: 20240218
  3. FOLIC ACID [Concomitant]
     Active Substance: FOLIC ACID
     Indication: Product used for unknown indication
     Dosage: START DATE TEXT: BEFORE STARTING HUMIRA
  4. FLECTOR [Concomitant]
     Active Substance: DICLOFENAC EPOLAMINE
     Indication: Analgesic therapy
  5. METHOTREXATE [Concomitant]
     Active Substance: METHOTREXATE
     Indication: Product used for unknown indication
     Dosage: START DATE TEXT: BEFORE STARTING HUMIRA
  6. GABAPENTIN [Concomitant]
     Active Substance: GABAPENTIN
     Indication: Analgesic therapy

REACTIONS (7)
  - Impaired healing [Fatal]
  - Inflammation [Fatal]
  - Bone marrow disorder [Fatal]
  - Haemoglobin decreased [Fatal]
  - Thermal burn [Fatal]
  - White blood cell count decreased [Fatal]
  - Full blood count decreased [Fatal]

NARRATIVE: CASE EVENT DATE: 20240301
